FAERS Safety Report 9840326 (Version 1)
Quarter: 2013Q4

REPORT INFORMATION
  Report Type: Spontaneous
  Country: US (occurrence: None)
  Receive Date: 20131223
  Receipt Date: 20131223
  Transmission Date: 20140711
  Serious: No
  Sender: FDA-Public Use
  Company Number: 219841LEO

PATIENT
  Age: 64 Year
  Sex: Female

DRUGS (1)
  1. PICATO, 0.015%, GEL [Suspect]
     Indication: ACTINIC KERATOSIS
     Route: 061
     Dates: start: 20121201, end: 20121203

REACTIONS (11)
  - Skin burning sensation [None]
  - Pain of skin [None]
  - Application site erythema [None]
  - Application site swelling [None]
  - Application site reaction [None]
  - Application site pain [None]
  - Application site pain [None]
  - Insomnia [None]
  - Insomnia [None]
  - Discomfort [None]
  - Drug administered at inappropriate site [None]
